FAERS Safety Report 11552207 (Version 1)
Quarter: 2015Q3

REPORT INFORMATION
  Report Type: Spontaneous
  Country: US (occurrence: None)
  Receive Date: 20150924
  Receipt Date: 20150924
  Transmission Date: 20151125
  Serious: No
  Sender: FDA-Public Use
  Company Number: None

PATIENT
  Age: 78 Year
  Sex: Female
  Weight: 62.14 kg

DRUGS (9)
  1. COENZYME Q10 [Concomitant]
     Active Substance: UBIDECARENONE
  2. VITAMIN C [Concomitant]
     Active Substance: ASCORBIC ACID
  3. VITAMIN D [Concomitant]
     Active Substance: CHOLECALCIFEROL
  4. LABETALOL [Concomitant]
     Active Substance: LABETALOL\LABETALOL HYDROCHLORIDE
  5. CRESTOR [Suspect]
     Active Substance: ROSUVASTATIN CALCIUM
     Indication: BLOOD CHOLESTEROL INCREASED
     Route: 048
  6. OCUVITE [Concomitant]
     Active Substance: VITAMINS
  7. ACIPHEX [Concomitant]
     Active Substance: RABEPRAZOLE SODIUM
  8. VIT B [Concomitant]
     Active Substance: VITAMINS
  9. CHLOTHALDONE [Concomitant]

REACTIONS (2)
  - Chromaturia [None]
  - Myalgia [None]

NARRATIVE: CASE EVENT DATE: 20150314
